FAERS Safety Report 9751949 (Version 2)
Quarter: 2014Q1

REPORT INFORMATION
  Report Type: Spontaneous
  Country: US (occurrence: US)
  Receive Date: 20131213
  Receipt Date: 20140224
  Transmission Date: 20141002
  Serious: Yes (Other)
  Sender: FDA-Public Use
  Company Number: US-BEH-2013039440

PATIENT
  Age: 53 Year
  Sex: Female

DRUGS (1)
  1. HIZENTRA [Suspect]
     Indication: IMMUNODEFICIENCY COMMON VARIABLE
     Dosage: COUPLE OF YEARS (2012) UNTIL ??-NOV-2013
     Route: 058

REACTIONS (10)
  - Pulmonary embolism [Not Recovered/Not Resolved]
  - Lung infiltration [Not Recovered/Not Resolved]
  - Skin exfoliation [Unknown]
  - Infusion site erythema [Recovered/Resolved]
  - Infusion site swelling [Recovered/Resolved]
  - Infusion site pain [Unknown]
  - Infusion site pruritus [Unknown]
  - Infusion site warmth [Unknown]
  - Infusion site mass [Recovered/Resolved]
  - Adverse reaction [Recovered/Resolved]
